FAERS Safety Report 16188944 (Version 1)
Quarter: 2019Q2

REPORT INFORMATION
  Report Type: Spontaneous
  Country: US (occurrence: US)
  Receive Date: 20190412
  Receipt Date: 20190412
  Transmission Date: 20190711
  Serious: No
  Sender: FDA-Public Use
  Company Number: US-TEVA-2019-US-1033854

PATIENT
  Sex: Female
  Weight: 93 kg

DRUGS (1)
  1. AIRDUO RESPICLICK [Suspect]
     Active Substance: FLUTICASONE PROPIONATE\SALMETEROL XINAFOATE
     Indication: EMPHYSEMA
     Dosage: 232/14MCG 1 PUFF TWICE DAILY
     Route: 065
     Dates: start: 201801

REACTIONS (3)
  - Tremor [Unknown]
  - Feeling abnormal [Unknown]
  - Balance disorder [Unknown]
